FAERS Safety Report 19929108 (Version 5)
Quarter: 2022Q3

REPORT INFORMATION
  Report Type: Report from Study
  Country: US (occurrence: US)
  Receive Date: 20211007
  Receipt Date: 20220905
  Transmission Date: 20221026
  Serious: No
  Sender: FDA-Public Use
  Company Number: US-NOVARTISTESTPH-NVSC2021US229722

PATIENT
  Sex: Female
  Weight: 77.098 kg

DRUGS (3)
  1. TREPROSTINIL [Suspect]
     Active Substance: TREPROSTINIL
     Indication: Pulmonary arterial hypertension
     Dosage: UNK, CONT (51 NG/KG/MIN)
     Route: 058
     Dates: start: 20210913
  2. TREPROSTINIL [Suspect]
     Active Substance: TREPROSTINIL
     Dosage: UNK, CONT (51 NG/KG/MIN)
     Route: 058
     Dates: start: 20210913
  3. TREPROSTINIL [Suspect]
     Active Substance: TREPROSTINIL
     Dosage: UNK, CONT (51 NG/KG/MIN)
     Route: 058
     Dates: start: 20210913

REACTIONS (7)
  - Skin mass [Unknown]
  - Malaise [Unknown]
  - Device breakage [Unknown]
  - Product leakage [Unknown]
  - Infusion site pain [Unknown]
  - Pruritus [Unknown]
  - Infusion site pruritus [Unknown]
